FAERS Safety Report 22392963 (Version 1)
Quarter: 2023Q2

REPORT INFORMATION
  Report Type: Spontaneous
  Country: US (occurrence: None)
  Receive Date: 20230531
  Receipt Date: 20230531
  Transmission Date: 20230721
  Serious: Yes (Death)
  Sender: FDA-Public Use
  Company Number: None

PATIENT

DRUGS (14)
  1. DOCETAXEL [Suspect]
     Active Substance: DOCETAXEL
     Dosage: 153MG  Q21D INJECT INTRAVENOUSLY?
     Route: 042
  2. NEULASTA [Suspect]
     Active Substance: PEGFILGRASTIM
     Dosage: 6MG  Q21D INJECT SUBCUTANEOUSLY?
     Route: 058
  3. POLYETHYLENE GLYCOLS [Concomitant]
     Active Substance: POLYETHYLENE GLYCOLS
  4. CVS ESOMEPRAZOLE [Concomitant]
  5. DOCUSATE SODIUM [Concomitant]
     Active Substance: DOCUSATE SODIUM
  6. METOPROLOL SUCCINATE [Concomitant]
     Active Substance: METOPROLOL SUCCINATE
  7. HYDROCORTISONE [Concomitant]
     Active Substance: HYDROCORTISONE
  8. LACTULOSE [Concomitant]
     Active Substance: LACTULOSE
  9. BICALUTAMIDE [Concomitant]
     Active Substance: BICALUTAMIDE
  10. MORPHINE [Concomitant]
     Active Substance: MORPHINE
  11. CVS SENNA [Concomitant]
  12. DRONABINOL [Concomitant]
     Active Substance: DRONABINOL
  13. OXYCODONE [Concomitant]
     Active Substance: OXYCODONE
  14. KETOCONAZOLE [Concomitant]
     Active Substance: KETOCONAZOLE

REACTIONS (1)
  - Death [None]
